FAERS Safety Report 8350213-1 (Version None)
Quarter: 2012Q2

REPORT INFORMATION
  Report Type: 
  Country: None (occurrence: None)
  Receive Date: 20120510
  Receipt Date: 20120503
  Transmission Date: 20120825
  Serious: Yes (Other)
  Sender: FDA-Public Use
  Company Number: US-COVIDIEN/TYCO HEALTHCARE/MALLINCKRODT-T201201636

PATIENT
  Age: 57 Year
  Sex: Male

DRUGS (4)
  1. HYDROMORPHONE HCL [Suspect]
     Dosage: 14/10/9
     Route: 042
  2. HYDROMORPHONE HCL [Suspect]
     Indication: BACK PAIN
     Dosage: BOLUS DOSE 0.4 MG (0.4/10/0)
     Route: 042
  3. HYDROMORPHONE HCL [Suspect]
     Dosage: 20/10/9
     Route: 042
  4. HYDROMORPHONE HCL [Suspect]
     Dosage: 10/10/0
     Route: 042

REACTIONS (1)
  - NEUROTOXICITY [None]
